FAERS Safety Report 18755064 (Version 1)
Quarter: 2021Q1

REPORT INFORMATION
  Report Type: Spontaneous
  Country: US (occurrence: US)
  Receive Date: 20210115
  Receipt Date: 20210115
  Transmission Date: 20210419
  Serious: Yes (Hospitalization)
  Sender: FDA-Public Use
  Company Number: None

PATIENT
  Age: 71 Year
  Sex: Male
  Weight: 96.8 kg

DRUGS (11)
  1. CARBIDOPA?LEVODOPA [Concomitant]
     Active Substance: CARBIDOPA\LEVODOPA
  2. FINASTERIDE. [Concomitant]
     Active Substance: FINASTERIDE
  3. ASPIRIN. [Concomitant]
     Active Substance: ASPIRIN
  4. LISINOPRIL. [Concomitant]
     Active Substance: LISINOPRIL
  5. ZINC SULFATE. [Concomitant]
     Active Substance: ZINC SULFATE
  6. CHOLECALCIFEROL [Concomitant]
     Active Substance: CHOLECALCIFEROL
  7. FAMOTIDINE. [Concomitant]
     Active Substance: FAMOTIDINE
  8. TROSPIUM [Concomitant]
     Active Substance: TROSPIUM
  9. BAMLANIVIMAB FOR EUA [Suspect]
     Active Substance: BAMLANIVIMAB
     Indication: COVID-19
     Dates: start: 20201231, end: 20201231
  10. ASCORBIC ACID. [Concomitant]
     Active Substance: ASCORBIC ACID
  11. ATORVASTATIN [Concomitant]
     Active Substance: ATORVASTATIN

REACTIONS (8)
  - Dyspnoea [None]
  - Cough [None]
  - Fatigue [None]
  - Asthenia [None]
  - Pyrexia [None]
  - Hypophagia [None]
  - Oxygen saturation decreased [None]
  - Drug ineffective [None]

NARRATIVE: CASE EVENT DATE: 20210112
